FAERS Safety Report 9813609 (Version 2)
Quarter: 2014Q1

REPORT INFORMATION
  Report Type: Spontaneous
  Country: FR (occurrence: FR)
  Receive Date: 20140113
  Receipt Date: 20140122
  Transmission Date: 20141002
  Serious: Yes (Death, Hospitalization, Other)
  Sender: FDA-Public Use
  Company Number: FR-ELI_LILLY_AND_COMPANY-FR201401001513

PATIENT
  Age: 73 Year
  Sex: Male

DRUGS (13)
  1. GEMZAR [Suspect]
     Indication: T-CELL LYMPHOMA
     Dosage: 1400 MG, CYCLICAL
     Route: 042
     Dates: start: 20130819, end: 20131016
  2. OXALIPLATIN TEVA [Suspect]
     Indication: T-CELL LYMPHOMA
     Dosage: 140 MG, CYCLICAL
     Route: 042
     Dates: start: 20130819, end: 20131016
  3. ENDOXAN [Suspect]
     Indication: T-CELL LYMPHOMA
     Dosage: 1 G, CYCLICAL
     Route: 042
     Dates: start: 20131030, end: 20131030
  4. ADRIBLASTINE [Suspect]
     Indication: T-CELL LYMPHOMA
     Dosage: 70 MG, CYCLICAL
     Route: 042
     Dates: start: 20131030, end: 20131030
  5. VINCRISTINE [Suspect]
     Indication: T-CELL LYMPHOMA
     Dosage: 2 MG, CYCLICAL
     Route: 042
     Dates: start: 20131030, end: 20131030
  6. SOLUMEDROL [Suspect]
     Indication: T-CELL LYMPHOMA
     Dosage: 100 MG, SINGLE
     Route: 042
     Dates: start: 20131030, end: 20131030
  7. KARDEGIC [Concomitant]
     Dosage: 160 MG, QD
     Dates: start: 201305
  8. LASILIX [Concomitant]
     Dosage: 20 MG, QD
     Dates: start: 201305
  9. EUPANTOL [Concomitant]
     Dosage: 20 MG, QD
     Dates: start: 201305
  10. TRIATEC [Concomitant]
     Dosage: 1.25 MG, QD
     Dates: start: 201305
  11. PROCORALAN [Concomitant]
     Dosage: 5 MG, QD
     Dates: start: 201305
  12. SOLU-PRED [Concomitant]
     Dosage: 60 MG, QD
     Dates: start: 201305
  13. STILNOX [Concomitant]
     Dosage: 1 DF, QD
     Dates: start: 201305

REACTIONS (9)
  - Interstitial lung disease [Fatal]
  - Septic shock [Fatal]
  - Arrhythmia [Fatal]
  - Bone marrow failure [Unknown]
  - Inflammation [Unknown]
  - Malignant neoplasm progression [Unknown]
  - General physical health deterioration [Unknown]
  - Decreased appetite [Unknown]
  - Off label use [Unknown]
